FAERS Safety Report 6638231-2 (Version None)
Quarter: 2010Q1

REPORT INFORMATION
  Report Type: 
  Country: None (occurrence: None)
  Receive Date: 20100316
  Receipt Date: 20100316
  Transmission Date: 20100710
  Serious: Yes (Death)
  Sender: FDA-Public Use
  Company Number: None

PATIENT
  Age: 63 Year
  Sex: Female
  Weight: 95.2 kg

DRUGS (2)
  1. ISONIAZID 300 MG UNK [Suspect]
     Dosage: 300 MG DAILY ORAL 947
     Route: 048
  2. RIFAMPIN [Suspect]
     Dosage: 300 MG DAILY ORAL 047
     Route: 048

REACTIONS (5)
  - COAGULOPATHY [None]
  - JAUNDICE [None]
  - MALAISE [None]
  - MENTAL STATUS CHANGES [None]
  - NAUSEA [None]
